FAERS Safety Report 12517594 (Version 17)
Quarter: 2022Q1

REPORT INFORMATION
  Report Type: Report from Study
  Country: CL (occurrence: CL)
  Receive Date: 20160630
  Receipt Date: 20220301
  Transmission Date: 20220423
  Serious: Yes (Hospitalization, Other)
  Sender: FDA-Public Use
  Company Number: PHHY2016CL088658

PATIENT
  Age: 58 Year
  Sex: Female
  Weight: 69.5 kg

DRUGS (13)
  1. SANDOSTATIN LAR DEPOT [Suspect]
     Active Substance: OCTREOTIDE ACETATE
     Indication: Acromegaly
     Dosage: 20 MG, QMO, ONCE A MONTH
     Route: 030
     Dates: start: 20150915
  2. SANDOSTATIN LAR DEPOT [Suspect]
     Active Substance: OCTREOTIDE ACETATE
     Dosage: 20 MG, QMO
     Route: 030
     Dates: start: 2016
  3. SANDOSTATIN LAR DEPOT [Suspect]
     Active Substance: OCTREOTIDE ACETATE
  4. LEVOTHYROXINE [Concomitant]
     Active Substance: LEVOTHYROXINE
     Indication: Hypothyroidism
     Dosage: 100 UG, QD ( 3 TIMES A WEEK)
     Route: 048
     Dates: start: 20141027
  5. LEVOTHYROXINE [Concomitant]
     Active Substance: LEVOTHYROXINE
     Dosage: 100 UG, QD
     Route: 048
     Dates: start: 201511
  6. LEVOTHYROXINE [Concomitant]
     Active Substance: LEVOTHYROXINE
     Dosage: 100 UG, QD
     Route: 048
     Dates: start: 20160309
  7. CABERGOLINE [Concomitant]
     Active Substance: CABERGOLINE
     Indication: Acromegaly
     Dosage: 1 MG, QW
     Route: 048
     Dates: start: 20131211
  8. CABERGOLINE [Concomitant]
     Active Substance: CABERGOLINE
     Dosage: 1 MG, QW
     Route: 048
     Dates: start: 201511
  9. CABERGOLINE [Concomitant]
     Active Substance: CABERGOLINE
     Dosage: 1 MG, QW
     Route: 048
     Dates: start: 20160309
  10. ENALAPRIL [Concomitant]
     Active Substance: ENALAPRIL
     Indication: Product used for unknown indication
     Dosage: 100 OT, UNK
     Route: 065
     Dates: start: 201511
  11. ENALAPRIL [Concomitant]
     Active Substance: ENALAPRIL
     Dosage: 100 OT, UNK
     Route: 065
     Dates: start: 20160309
  12. CARBOLIN [Concomitant]
     Indication: Product used for unknown indication
     Dosage: UNK ( 3 TIMES A WEEK)
     Route: 065
  13. CALCIUM [Concomitant]
     Active Substance: CALCIUM
     Indication: Product used for unknown indication
     Route: 065

REACTIONS (55)
  - Pancreatolithiasis [Recovered/Resolved]
  - Peripancreatic fluid collection [Recovered/Resolved]
  - Thyroid disorder [Not Recovered/Not Resolved]
  - Pancreatitis acute [Recovered/Resolved]
  - Flank pain [Recovered/Resolved]
  - Back pain [Recovered/Resolved]
  - Nausea [Unknown]
  - Vomiting [Unknown]
  - Abdominal distension [Unknown]
  - Amylase increased [Unknown]
  - Lipase increased [Unknown]
  - Memory impairment [Unknown]
  - Head titubation [Unknown]
  - Headache [Unknown]
  - Pancreatitis [Unknown]
  - Secretion discharge [Not Recovered/Not Resolved]
  - Amnesia [Unknown]
  - Pharyngitis [Unknown]
  - Oropharyngeal pain [Unknown]
  - Productive cough [Unknown]
  - Increased upper airway secretion [Unknown]
  - Polyp [Unknown]
  - Hypersensitivity [Unknown]
  - Back pain [Unknown]
  - Cholelithiasis [Unknown]
  - Gallbladder enlargement [Unknown]
  - Inflammation [Unknown]
  - Colon injury [Unknown]
  - Visual impairment [Unknown]
  - Hypoacusis [Unknown]
  - Malaise [Unknown]
  - Blood triglycerides increased [Unknown]
  - Chronic gastritis [Unknown]
  - Discomfort [Unknown]
  - Hot flush [Unknown]
  - Blood cholesterol increased [Unknown]
  - Spinal pain [Unknown]
  - Panic disorder [Unknown]
  - Pain [Unknown]
  - Fatigue [Unknown]
  - COVID-19 [Unknown]
  - Mental disorder [Unknown]
  - Anxiety [Unknown]
  - Dizziness [Unknown]
  - Dysphonia [Unknown]
  - Sensation of foreign body [Unknown]
  - Muscular weakness [Unknown]
  - Emotional distress [Unknown]
  - Liver disorder [Unknown]
  - Illness [Unknown]
  - Dysphagia [Unknown]
  - Cough [Unknown]
  - Abdominal pain upper [Recovered/Resolved]
  - Dyspnoea [Unknown]
  - Product supply issue [Unknown]

NARRATIVE: CASE EVENT DATE: 20160205
